FAERS Safety Report 6669402-7 (Version None)
Quarter: 2010Q2

REPORT INFORMATION
  Report Type: 
  Country: None (occurrence: None)
  Receive Date: 20100402
  Receipt Date: 20100317
  Transmission Date: 20101027
  Serious: Yes (Hospitalization)
  Sender: FDA-Public Use
  Company Number: RB-03050-2010

PATIENT
  Age: 41 Year
  Sex: Female

DRUGS (2)
  1. SUBOXONE [Suspect]
     Indication: DRUG USE FOR UNKNOWN INDICATION
  2. SUBUTEX [Suspect]
     Indication: DRUG USE FOR UNKNOWN INDICATION

REACTIONS (5)
  - ADRENAL NEOPLASM [None]
  - COLITIS ISCHAEMIC [None]
  - DRUG HYPERSENSITIVITY [None]
  - HEADACHE [None]
  - IRRITABLE BOWEL SYNDROME [None]
